FAERS Safety Report 8789368 (Version 1)
Quarter: 2012Q4

REPORT INFORMATION
  Report Type: Spontaneous
  Country: US (occurrence: None)
  Receive Date: 20120904
  Receipt Date: 20120904
  Transmission Date: 20130627
  Serious: Yes (Hospitalization, Other)
  Sender: FDA-Public Use
  Company Number: TPA2012A05924

PATIENT
  Age: 72 Year
  Sex: Male
  Weight: 108.86 kg

DRUGS (3)
  1. ACTOS (PIOGLITAZONE HYDROCHLORIDE) [Suspect]
     Indication: TYPE 2 DIABETES MELLITUS
     Route: 048
  2. LOPRESSOR (METOPROLOL TARTRATE) [Concomitant]
  3. SEVERAL UNSPECIFIED MEDICATIONS (ALL OTHER THERAPEUTIC PRODUCTS) [Concomitant]

REACTIONS (5)
  - Blood pressure decreased [None]
  - Heart rate increased [None]
  - Nausea [None]
  - Weight increased [None]
  - Arterial occlusive disease [None]
